FAERS Safety Report 18234783 (Version 4)
Quarter: 2021Q1

REPORT INFORMATION
  Report Type: Report from Study
  Country: US (occurrence: US)
  Receive Date: 20200904
  Receipt Date: 20210208
  Transmission Date: 20210419
  Serious: No
  Sender: FDA-Public Use
  Company Number: NVSC2020US243429

PATIENT
  Age: 56 Year
  Sex: Female

DRUGS (1)
  1. COSENTYX [Suspect]
     Active Substance: SECUKINUMAB
     Indication: PSORIASIS
     Dosage: 150 MG, Q4W
     Route: 058

REACTIONS (3)
  - Psoriasis [Not Recovered/Not Resolved]
  - Product dose omission issue [Unknown]
  - Stress [Unknown]

NARRATIVE: CASE EVENT DATE: 202009
